FAERS Safety Report 13209046 (Version 1)
Quarter: 2017Q1

REPORT INFORMATION
  Report Type: Spontaneous
  Country: TN (occurrence: TN)
  Receive Date: 20170209
  Receipt Date: 20170209
  Transmission Date: 20170428
  Serious: Yes (Hospitalization, Other)
  Sender: FDA-Public Use
  Company Number: TN-B.I. PHARMACEUTICALS,INC./RIDGEFIELD-2017-BI-006341

PATIENT
  Sex: Male

DRUGS (1)
  1. MICARDIS PLUS [Suspect]
     Active Substance: HYDROCHLOROTHIAZIDE\TELMISARTAN
     Indication: HYPERTENSION
     Dosage: STRENGTH: 80MG/25MG; DOSE: 80/25MG; DAILY DOSE: 80/25MG
     Route: 048
     Dates: start: 201608

REACTIONS (2)
  - Blood creatinine increased [Unknown]
  - Anuria [Unknown]
